FAERS Safety Report 25199309 (Version 1)
Quarter: 2025Q2

REPORT INFORMATION
  Report Type: Spontaneous
  Country: FR (occurrence: FR)
  Receive Date: 20250415
  Receipt Date: 20250415
  Transmission Date: 20250717
  Serious: Yes (Other)
  Sender: TEVA
  Company Number: None

PATIENT
  Age: 72 Year
  Sex: Male
  Weight: 79 kg

DRUGS (3)
  1. SULFAMETHOXAZOLE\TRIMETHOPRIM [Interacting]
     Active Substance: SULFAMETHOXAZOLE\TRIMETHOPRIM
     Indication: Osteitis
     Dosage: COTRIMOXAZOLE TEVA
     Route: 048
     Dates: start: 20250219, end: 20250305
  2. RAMIPRIL [Interacting]
     Active Substance: RAMIPRIL
     Indication: Prophylaxis
     Route: 048
     Dates: start: 20250212, end: 20250305
  3. RAMIPRIL [Interacting]
     Active Substance: RAMIPRIL
     Indication: Prophylaxis
     Route: 048
     Dates: start: 20250201, end: 20250211

REACTIONS (2)
  - Hyperkalaemia [Recovered/Resolved]
  - Acute kidney injury [Recovered/Resolved]

NARRATIVE: CASE EVENT DATE: 20250224
